FAERS Safety Report 24877915 (Version 1)
Quarter: 2025Q1

REPORT INFORMATION
  Report Type: Spontaneous
  Country: FR (occurrence: FR)
  Receive Date: 20250123
  Receipt Date: 20250123
  Transmission Date: 20250409
  Serious: Yes (Hospitalization)
  Sender: RANBAXY
  Company Number: FR-SUN PHARMACEUTICAL INDUSTRIES LTD-2025RR-489385

PATIENT
  Age: 48 Year
  Sex: Female

DRUGS (9)
  1. ZOLPIDEM [Suspect]
     Active Substance: ZOLPIDEM TARTRATE
     Indication: Product used for unknown indication
     Dosage: 10 MILLIGRAM, DAILY
     Route: 048
     Dates: start: 2023, end: 2024
  2. ZOLPIDEM [Suspect]
     Active Substance: ZOLPIDEM TARTRATE
     Dosage: 35 MILLIGRAM, DAILY
     Route: 048
     Dates: start: 2024
  3. TRAMADOL [Suspect]
     Active Substance: TRAMADOL
     Indication: Product used for unknown indication
     Dosage: 750 MILLIGRAM, DAILY
     Route: 048
     Dates: start: 2022, end: 2023
  4. TRAMADOL [Suspect]
     Active Substance: TRAMADOL
     Dosage: 500 MILLIGRAM, DAILY
     Route: 048
     Dates: start: 2023, end: 2024
  5. TRAMADOL [Suspect]
     Active Substance: TRAMADOL
     Dosage: 400 MILLIGRAM, DAILY
     Route: 048
     Dates: start: 2024
  6. FENTANYL [Suspect]
     Active Substance: FENTANYL
     Indication: Product used for unknown indication
     Dosage: 50 MCG, DAILY
     Route: 062
     Dates: start: 2024, end: 20240719
  7. FENTANYL [Suspect]
     Active Substance: FENTANYL
     Dosage: 25 MICROGRAM, DAILY
     Route: 062
     Dates: start: 20240719, end: 202409
  8. MORPHINE SULFATE [Suspect]
     Active Substance: MORPHINE SULFATE
     Indication: Product used for unknown indication
     Route: 048
     Dates: start: 2023, end: 2024
  9. OXYCODONE HYDROCHLORIDE [Suspect]
     Active Substance: OXYCODONE HYDROCHLORIDE
     Indication: Product used for unknown indication
     Route: 065
     Dates: start: 2023, end: 20240719

REACTIONS (1)
  - Drug use disorder [Not Recovered/Not Resolved]

NARRATIVE: CASE EVENT DATE: 20240101
